FAERS Safety Report 10379794 (Version 1)
Quarter: 2014Q1

REPORT INFORMATION
  Report Type: Spontaneous
  Country: US (occurrence: None)
  Receive Date: 20140306
  Receipt Date: 20140306
  Transmission Date: 20141002
  Serious: Yes (Hospitalization)
  Sender: FDA-Public Use
  Company Number: 163-21880-13013368

PATIENT
  Age: 58 Year
  Sex: Male
  Weight: 74.84 kg

DRUGS (9)
  1. REVLIMID (LENALIDOMIDE) (CAPSULES) [Suspect]
     Indication: PLASMA CELL MYELOMA
     Dosage: 25 MG, 14 IN 14 D, PO
     Route: 048
     Dates: start: 20130121
  2. POTASSIUM [Concomitant]
  3. ALLOPURINOL [Concomitant]
  4. VELCADE (BORTEZOMIB) [Concomitant]
  5. CARBAMAZEPINE HCL [Concomitant]
  6. ONDANSETRON HCL (ONDANSETRON HYDROCHLORIDE) [Concomitant]
  7. PERCOCET (OXYCOCET) [Concomitant]
  8. VITAMIN E (TOCOPHEROL) [Concomitant]
  9. OXYCONTIN (OXYCODONE HYDROCHLORIDE) [Concomitant]

REACTIONS (3)
  - Vomiting [None]
  - Asthenia [None]
  - Dehydration [None]
